FAERS Safety Report 8531648-0 (Version None)
Quarter: 2012Q3

REPORT INFORMATION
  Report Type: 
  Country: None (occurrence: None)
  Receive Date: 20120723
  Receipt Date: 20120716
  Transmission Date: 20120928
  Serious: Yes (Hospitalization)
  Sender: FDA-Public Use
  Company Number: CA-BAYER-2012-070358

PATIENT
  Age: 39 Year
  Sex: Female
  Weight: 225 kg

DRUGS (8)
  1. TYLENOL W/ CODEINE NO. 4 [Concomitant]
  2. REMICADE [Suspect]
     Dosage: 1 EVERY 8 WEEKS
     Route: 042
  3. PREVACID [Concomitant]
  4. REMICADE [Suspect]
     Route: 065
  5. AVELOX [Suspect]
  6. DIOVAN [Concomitant]
  7. PREDNISONE [Concomitant]
  8. WELLBUTRIN [Concomitant]

REACTIONS (2)
  - SINUSITIS [None]
  - ADVERSE DRUG REACTION [None]
